FAERS Safety Report 6938709-8 (Version None)
Quarter: 2010Q3

REPORT INFORMATION
  Report Type: 
  Country: None (occurrence: None)
  Receive Date: 20100824
  Receipt Date: 20100813
  Transmission Date: 20110219
  Serious: Yes (Hospitalization, Other)
  Sender: FDA-Public Use
  Company Number: PHHY2010US54034

PATIENT
  Age: 45 Year
  Sex: Female

DRUGS (6)
  1. CYCLOSPORINE [Suspect]
     Indication: HEART TRANSPLANT
     Dosage: UNK
     Dates: start: 20080101
  2. MYCOPHENOLATE MOFETIL [Suspect]
     Indication: HEART TRANSPLANT
     Dosage: UNK
     Dates: start: 20080101
  3. PREDNISOLONE [Suspect]
     Indication: HEART TRANSPLANT
     Dosage: UNK
     Dates: start: 20080101
  4. CASPOFUNGIN [Concomitant]
     Route: 042
  5. ITRACONAZOLE [Concomitant]
     Dosage: 200 MG, BID
     Route: 048
  6. POSACONAZOLE [Concomitant]

REACTIONS (6)
  - ALTERNARIA INFECTION [None]
  - EPSTEIN-BARR VIRUS INFECTION [None]
  - HEART TRANSPLANT REJECTION [None]
  - LESION EXCISION [None]
  - MYOCARDITIS [None]
  - PHAEHYPHOMYCOSIS [None]
